FAERS Safety Report 23573611 (Version 2)
Quarter: 2024Q2

REPORT INFORMATION
  Report Type: Spontaneous
  Country: IT (occurrence: IT)
  Receive Date: 20240228
  Receipt Date: 20240410
  Transmission Date: 20240716
  Serious: Yes (Other)
  Sender: FDA-Public Use
  Company Number: IT-EMA-DD-20240214-7482701-110317

PATIENT
  Age: 52 Year
  Sex: Male

DRUGS (1)
  1. TELMISARTAN [Suspect]
     Active Substance: TELMISARTAN
     Indication: Hypertension
     Dosage: 40 MILLIGRAM, ONCE A DAY (40 MG, PER DAY)
     Route: 065

REACTIONS (1)
  - Sprue-like enteropathy [Recovered/Resolved]
